FAERS Safety Report 4820812-X (Version None)
Quarter: 2005Q4

REPORT INFORMATION
  Report Type: 
  Country: None (occurrence: None)
  Receive Date: 20051104
  Receipt Date: 20051031
  Transmission Date: 20060501
  Serious: Yes (Other)
  Sender: FDA-Public Use
  Company Number: US-JNJFOC-20050106713

PATIENT
  Age: 60 Year
  Sex: Female
  Weight: 58.97 kg

DRUGS (3)
  1. LEVAQUIN [Suspect]
     Indication: PNEUMONIA
     Route: 048
     Dates: start: 20041022, end: 20041031
  2. ASPIRIN [Concomitant]
  3. ADVIL [Concomitant]

REACTIONS (19)
  - ABDOMINAL DISTENSION [None]
  - AGEUSIA [None]
  - ANOSMIA [None]
  - ARTHRALGIA [None]
  - DEAFNESS [None]
  - DEPRESSION [None]
  - DIZZINESS [None]
  - DRY MOUTH [None]
  - INSOMNIA [None]
  - MYALGIA [None]
  - NERVOUS SYSTEM DISORDER [None]
  - NIGHTMARE [None]
  - PLANTAR FASCIITIS [None]
  - PSYCHOTIC DISORDER [None]
  - TENDONITIS [None]
  - TINNITUS [None]
  - TONGUE DISORDER [None]
  - VAGINAL INFECTION [None]
  - WEIGHT INCREASED [None]
